FAERS Safety Report 8809753 (Version 2)
Quarter: 2015Q1

REPORT INFORMATION
  Report Type: Report from Study
  Country: US (occurrence: US)
  Receive Date: 20120926
  Receipt Date: 20150204
  Transmission Date: 20150721
  Serious: Yes (Death)
  Sender: FDA-Public Use
  Company Number: US-ROCHE-1125727

PATIENT
  Sex: Female
  Weight: 90.35 kg

DRUGS (1)
  1. HERCEPTIN [Suspect]
     Active Substance: TRASTUZUMAB
     Indication: OVARIAN CANCER
     Route: 065
     Dates: start: 19990301, end: 19990401

REACTIONS (2)
  - Off label use [Unknown]
  - Death [Fatal]
